FAERS Safety Report 7754492-0 (Version None)
Quarter: 2011Q3

REPORT INFORMATION
  Report Type: 
  Country: None (occurrence: None)
  Receive Date: 20110915
  Receipt Date: 20110905
  Transmission Date: 20111222
  Serious: Yes (Hospitalization)
  Sender: FDA-Public Use
  Company Number: BR-US-EMD SERONO, INC.-7069560

PATIENT
  Sex: Female

DRUGS (2)
  1. REBIF [Suspect]
     Indication: RELAPSING-REMITTING MULTIPLE SCLEROSIS
     Route: 058
     Dates: start: 20090302
  2. OTHER UNSPECIFIED MEDICATION [Concomitant]
     Indication: CONTRACEPTION

REACTIONS (2)
  - HEMIPLEGIA [None]
  - MULTIPLE SCLEROSIS RELAPSE [None]
